FAERS Safety Report 10416742 (Version 1)
Quarter: 2014Q3

REPORT INFORMATION
  Report Type: Spontaneous
  Country: US (occurrence: None)
  Receive Date: 20140826
  Receipt Date: 20140826
  Transmission Date: 20150326
  Serious: Yes (Other)
  Sender: FDA-Public Use
  Company Number: AUR-APL-2014-09002

PATIENT
  Age: 77 Year
  Sex: Female
  Weight: 72.1 kg

DRUGS (6)
  1. SYNTHROID [Concomitant]
     Active Substance: LEVOTHYROXINE SODIUM
  2. NEXIUM [Concomitant]
     Active Substance: ESOMEPRAZOLE MAGNESIUM
  3. MOBIC [Concomitant]
     Active Substance: MELOXICAM
  4. CYMBALTA [Suspect]
     Active Substance: DULOXETINE HYDROCHLORIDE
     Indication: PROCEDURAL PAIN
  5. VYTORIN [Concomitant]
     Active Substance: EZETIMIBE\SIMVASTATIN
  6. TRAMADOL [Suspect]
     Active Substance: TRAMADOL
     Indication: PROCEDURAL PAIN

REACTIONS (4)
  - Serotonin syndrome [None]
  - Drug interaction [None]
  - Feeling abnormal [None]
  - Hallucination, visual [None]

NARRATIVE: CASE EVENT DATE: 201312
